FAERS Safety Report 5692885-6 (Version None)
Quarter: 2008Q2

REPORT INFORMATION
  Report Type: 
  Country: None (occurrence: None)
  Receive Date: 20080326
  Receipt Date: 20080116
  Transmission Date: 20081010
  Serious: No
  Sender: FDA-Public Use
  Company Number: US-CVT-080005

PATIENT
  Age: 69 Year
  Sex: Male

DRUGS (15)
  1. RANEXA [Suspect]
     Indication: ANGINA PECTORIS
     Dosage: 500 MG, BID, ORAL ; 1000 MG, BID, ORAL ; 500 MG, BID, ORAL
     Route: 048
     Dates: start: 20071109, end: 20071126
  2. RANEXA [Suspect]
     Indication: ANGINA PECTORIS
     Dosage: 500 MG, BID, ORAL ; 1000 MG, BID, ORAL ; 500 MG, BID, ORAL
     Route: 048
     Dates: start: 20071109, end: 20071126
  3. RANEXA [Suspect]
     Indication: ANGINA PECTORIS
     Dosage: 500 MG, BID, ORAL ; 1000 MG, BID, ORAL ; 500 MG, BID, ORAL
     Route: 048
     Dates: start: 20071127, end: 20080115
  4. RANEXA [Suspect]
     Indication: ANGINA PECTORIS
     Dosage: 500 MG, BID, ORAL ; 1000 MG, BID, ORAL ; 500 MG, BID, ORAL
     Route: 048
     Dates: start: 20080118
  5. DILTIAZEM [Suspect]
     Dosage: 60 MG, BID, ORAL ; 60 MG, TID, ORAL
     Route: 048
     Dates: end: 20071126
  6. DILTIAZEM [Suspect]
     Dosage: 60 MG, BID, ORAL ; 60 MG, TID, ORAL
     Route: 048
     Dates: start: 20071127
  7. NITROGLYCERIN (GLYCERYL TRINTRATE) [Concomitant]
  8. PLAVIX [Concomitant]
  9. METOPROLOL/00376901/(METOPROLOL) [Concomitant]
  10. CRESTOR [Concomitant]
  11. ZETIA [Concomitant]
  12. ATACAND [Concomitant]
  13. NIASPAN [Concomitant]
  14. ASPIRIN/00002701/ (ACETYLSALCYLIC ACID) [Concomitant]
  15. METFORMIN/00082701/ (METFORMIN) [Concomitant]

REACTIONS (2)
  - ARTHRALGIA [None]
  - TREMOR [None]
